FAERS Safety Report 5867064-X (Version None)
Quarter: 2008Q3

REPORT INFORMATION
  Report Type: 
  Country: None (occurrence: None)
  Receive Date: 20080902
  Receipt Date: 20080829
  Transmission Date: 20090109
  Serious: Yes (Hospitalization)
  Sender: FDA-Public Use
  Company Number: B0533603A

PATIENT
  Age: 36 Year
  Sex: Female
  Weight: 57 kg

DRUGS (9)
  1. PAXIL [Suspect]
     Indication: DEPRESSION
     Dosage: 10MG PER DAY
     Route: 048
     Dates: start: 20080809, end: 20080812
  2. AUGMENTIN '125' [Suspect]
     Indication: DRUG USE FOR UNKNOWN INDICATION
     Route: 048
  3. U PAN [Suspect]
     Indication: DEPRESSION
     Dosage: .5MG TWICE PER DAY
     Route: 048
     Dates: start: 20080809, end: 20080812
  4. CEFDINIR [Suspect]
     Indication: DRUG USE FOR UNKNOWN INDICATION
     Route: 048
     Dates: start: 20080811, end: 20080812
  5. MUCOSAL [Suspect]
     Indication: DRUG USE FOR UNKNOWN INDICATION
     Route: 048
     Dates: start: 20080811, end: 20080812
  6. DASEN [Suspect]
     Indication: DRUG USE FOR UNKNOWN INDICATION
     Route: 048
     Dates: start: 20080811, end: 20080812
  7. BIOFERMIN R [Suspect]
     Indication: DRUG USE FOR UNKNOWN INDICATION
     Route: 048
     Dates: start: 20080811, end: 20080812
  8. ALLEGRA [Suspect]
     Indication: DRUG USE FOR UNKNOWN INDICATION
     Route: 048
     Dates: start: 20080811, end: 20080813
  9. GASMOTIN [Suspect]
     Indication: DRUG USE FOR UNKNOWN INDICATION
     Route: 048
     Dates: start: 20080809

REACTIONS (9)
  - ABDOMINAL PAIN [None]
  - DIARRHOEA [None]
  - DRUG ERUPTION [None]
  - ERYTHEMA [None]
  - ERYTHEMA MULTIFORME [None]
  - HEADACHE [None]
  - RASH PRURITIC [None]
  - SKIN LESION [None]
  - VOMITING [None]
